FAERS Safety Report 21125345 (Version 4)
Quarter: 2025Q3

REPORT INFORMATION
  Report Type: Spontaneous
  Country: AU (occurrence: AU)
  Receive Date: 20220725
  Receipt Date: 20250804
  Transmission Date: 20251020
  Serious: Yes (Other)
  Sender: MYLAN
  Company Number: AU-PFIZER INC-PV202200026522

PATIENT
  Sex: Female

DRUGS (16)
  1. DILANTIN [Suspect]
     Active Substance: PHENYTOIN
     Indication: Seizure
  2. DILANTIN [Suspect]
     Active Substance: PHENYTOIN
  3. DILANTIN [Suspect]
     Active Substance: PHENYTOIN
     Route: 065
  4. DILANTIN [Suspect]
     Active Substance: PHENYTOIN
     Route: 065
  5. DILANTIN [Suspect]
     Active Substance: PHENYTOIN
  6. DILANTIN [Suspect]
     Active Substance: PHENYTOIN
  7. DILANTIN [Suspect]
     Active Substance: PHENYTOIN
     Route: 065
  8. DILANTIN [Suspect]
     Active Substance: PHENYTOIN
     Route: 065
  9. MYSOLINE [Suspect]
     Active Substance: PRIMIDONE
     Indication: Seizure
  10. MYSOLINE [Suspect]
     Active Substance: PRIMIDONE
  11. MYSOLINE [Suspect]
     Active Substance: PRIMIDONE
     Route: 065
  12. MYSOLINE [Suspect]
     Active Substance: PRIMIDONE
     Route: 065
  13. MYSOLINE [Suspect]
     Active Substance: PRIMIDONE
  14. MYSOLINE [Suspect]
     Active Substance: PRIMIDONE
  15. MYSOLINE [Suspect]
     Active Substance: PRIMIDONE
     Route: 065
  16. MYSOLINE [Suspect]
     Active Substance: PRIMIDONE
     Route: 065

REACTIONS (10)
  - Hepatic fibrosis [Unknown]
  - Seizure [Unknown]
  - Fall [Unknown]
  - Craniofacial fracture [Unknown]
  - Rib fracture [Unknown]
  - Cervical vertebral fracture [Unknown]
  - Hepatic cirrhosis [Unknown]
  - Weight decreased [Unknown]
  - Intentional product use issue [Unknown]
  - Product formulation issue [Unknown]
